FAERS Safety Report 10642460 (Version 1)
Quarter: 2014Q4

REPORT INFORMATION
  Report Type: Spontaneous
  Country: US (occurrence: None)
  Receive Date: 20141208
  Receipt Date: 20141208
  Transmission Date: 20150529
  Serious: Yes (Disabling, Other)
  Sender: FDA-Public Use
  Company Number: 2014120001

PATIENT
  Sex: Female

DRUGS (6)
  1. MECLIZINE [Concomitant]
     Active Substance: MECLIZINE\MECLIZINE HYDROCHLORIDE
  2. CONTAC COLD AND FLU - DAY AND NIGHT [Suspect]
     Active Substance: ACETAMINOPHEN\CHLORPHENIRAMINE MALEATE\PHENYLEPHRINE HYDROCHLORIDE
     Indication: NASAL CONGESTION
     Dosage: 8 DOSAGE FORMS (4 DOSAGE FORMS, 2 IN 1 D)
  3. SIMVASTATIN. [Concomitant]
     Active Substance: SIMVASTATIN
  4. CONTAC COLD AND FLU - DAY AND NIGHT [Suspect]
     Active Substance: ACETAMINOPHEN\CHLORPHENIRAMINE MALEATE\PHENYLEPHRINE HYDROCHLORIDE
     Indication: RHINORRHOEA
     Dosage: 8 DOSAGE FORMS (4 DOSAGE FORMS, 2 IN 1 D)
  5. CONTAC COLD AND FLU - DAY AND NIGHT [Suspect]
     Active Substance: ACETAMINOPHEN\CHLORPHENIRAMINE MALEATE\PHENYLEPHRINE HYDROCHLORIDE
     Indication: SNEEZING
     Dosage: 8 DOSAGE FORMS (4 DOSAGE FORMS, 2 IN 1 D)
  6. THERAFLU (ACETAMINOPHEN, DIPHENHYDRAMINE HYDROCHLORIDE PHENYLEPHRINE HYDROCHLORIDE) [Concomitant]

REACTIONS (6)
  - Ovarian cancer [None]
  - Sleep apnoea syndrome [None]
  - Nasal congestion [None]
  - Panic attack [None]
  - Disability [None]
  - Fluid retention [None]
